FAERS Safety Report 19442766 (Version 1)
Quarter: 2021Q2

REPORT INFORMATION
  Report Type: Other
  Country: US (occurrence: US)
  Receive Date: 20210621
  Receipt Date: 20210621
  Transmission Date: 20210717
  Serious: No
  Sender: FDA-Public Use
  Company Number: US-ACORDA-ACO_169156_2021

PATIENT
  Age: 73 Year
  Sex: Male

DRUGS (4)
  1. CARBIDOPA/LEVODOPA [Concomitant]
     Active Substance: CARBIDOPA\LEVODOPA
     Dosage: 25/100 MG IMMEDIATE RELEASE 1 CAPSULE 2 CAPSULES, 2 CAPSULES AT 6AM, 2 CAPSULES AT 10, 2 CAPSULES 2:
  2. ONGENTYS [Concomitant]
     Active Substance: OPICAPONE
     Indication: PRODUCT USED FOR UNKNOWN INDICATION
     Dosage: 50 MG
     Route: 065
  3. INBRIJA [Suspect]
     Active Substance: LEVODOPA
     Indication: ON AND OFF PHENOMENON
     Dosage: 2 DOSAGE FORM, PRN, NOT TO EXCEED 5 DOSES A DAY
     Dates: start: 20210125
  4. CARBIDOPA/LEVODOPA [Concomitant]
     Active Substance: CARBIDOPA\LEVODOPA
     Indication: PRODUCT USED FOR UNKNOWN INDICATION
     Dosage: 25/100 MG 2 CAPSULES, 2 CAPSULES AT 6AM, 2 CAPSULES AT 10, 2 CAPSULES 2:00PM AND 2 AT 6:00PM, AND 1
     Route: 065

REACTIONS (2)
  - Product residue present [Unknown]
  - Dry throat [Unknown]

NARRATIVE: CASE EVENT DATE: 20210125
